FAERS Safety Report 12668786 (Version 1)
Quarter: 2016Q3

REPORT INFORMATION
  Report Type: Spontaneous
  Country: US (occurrence: US)
  Receive Date: 20160819
  Receipt Date: 20160819
  Transmission Date: 20161109
  Serious: No
  Sender: FDA-Public Use
  Company Number: US-ASTELLAS-2015US046678

PATIENT
  Age: 44 Year
  Sex: Male

DRUGS (6)
  1. AMBISOME [Suspect]
     Active Substance: AMPHOTERICIN B
     Indication: MENINGITIS BACTERIAL
  2. AMBISOME [Suspect]
     Active Substance: AMPHOTERICIN B
     Indication: WHITE BLOOD CELL COUNT INCREASED
     Dosage: UNK, UNKNOWN FREQ.
     Route: 065
     Dates: start: 20150606, end: 20150612
  3. AMBISOME [Suspect]
     Active Substance: AMPHOTERICIN B
     Indication: DEVICE RELATED INFECTION
  4. AMBISOME [Suspect]
     Active Substance: AMPHOTERICIN B
     Indication: MENINGITIS CANDIDA
  5. AMBISOME [Suspect]
     Active Substance: AMPHOTERICIN B
     Indication: TAENIASIS
  6. AMBISOME [Suspect]
     Active Substance: AMPHOTERICIN B
     Indication: INFLAMMATION

REACTIONS (1)
  - Off label use [Unknown]

NARRATIVE: CASE EVENT DATE: 20150606
